FAERS Safety Report 7770722-3 (Version None)
Quarter: 2011Q3

REPORT INFORMATION
  Report Type: 
  Country: None (occurrence: None)
  Receive Date: 20110922
  Receipt Date: 20101109
  Transmission Date: 20111222
  Serious: No
  Sender: FDA-Public Use
  Company Number: US-ASTRAZENECA-2010SE53129

PATIENT
  Age: 46 Year
  Sex: Male
  Weight: 86.2 kg

DRUGS (3)
  1. SEROQUEL [Suspect]
     Route: 048
     Dates: start: 20101101
  2. SEROQUEL [Suspect]
     Indication: BIPOLAR DISORDER
     Dosage: 50-70 MG AT NIGHT
     Route: 048
     Dates: start: 20060101, end: 20101001
  3. SEROQUEL [Suspect]
     Route: 048
     Dates: start: 20101001, end: 20101001

REACTIONS (2)
  - ANXIETY [None]
  - INCORRECT DOSE ADMINISTERED [None]
